FAERS Safety Report 22918118 (Version 2)
Quarter: 2024Q3

REPORT INFORMATION
  Report Type: Spontaneous
  Country: GB (occurrence: GB)
  Receive Date: 20230907
  Receipt Date: 20240712
  Transmission Date: 20241017
  Serious: Yes (Other)
  Sender: RANBAXY
  Company Number: None

PATIENT
  Age: 80 Year
  Sex: Female
  Weight: 76 kg

DRUGS (6)
  1. MORPHINE [Suspect]
     Active Substance: MORPHINE
     Indication: Ill-defined disorder
     Dosage: UNK
     Route: 065
     Dates: start: 20230815
  2. ATORVASTATIN [Concomitant]
     Active Substance: ATORVASTATIN
     Indication: Ill-defined disorder
     Dosage: TAKE ONE DAILY
     Route: 065
     Dates: start: 20230428
  3. CODEINE PHOSPHATE [Concomitant]
     Active Substance: CODEINE PHOSPHATE
     Indication: Ill-defined disorder
     Dosage: 1-2 TABLETS TO BE TAKEN FOUR TIMES A DAY
     Route: 065
     Dates: start: 20230428
  4. LORATADINE [Concomitant]
     Active Substance: LORATADINE
     Indication: Ill-defined disorder
     Dosage: ONE TO BE TAKEN DAILY
     Route: 065
     Dates: start: 20230428
  5. POLYETHYLENE GLYCOLS [Concomitant]
     Active Substance: POLYETHYLENE GLYCOLS
     Indication: Ill-defined disorder
     Dosage: 1 TO BE TAKEN TWICE DAILY WHEN REQUIRED
     Route: 065
     Dates: start: 20230428
  6. ACETAMINOPHEN [Concomitant]
     Active Substance: ACETAMINOPHEN
     Indication: Ill-defined disorder
     Dosage: TAKE 1 OR 2 UP TO 4 TIMES/DAY
     Route: 065
     Dates: start: 20230428

REACTIONS (1)
  - Hallucination [Unknown]

NARRATIVE: CASE EVENT DATE: 20230818
